FAERS Safety Report 5780159-4 (Version None)
Quarter: 2008Q2

REPORT INFORMATION
  Report Type: 
  Country: None (occurrence: None)
  Receive Date: 20080620
  Receipt Date: 20070723
  Transmission Date: 20081010
  Serious: No
  Sender: FDA-Public Use
  Company Number: US-BRISTOL-MYERS SQUIBB COMPANY-13855796

PATIENT
  Sex: Male

DRUGS (3)
  1. LODOSYN TABS [Suspect]
     Route: 048
  2. MIRAPEX [Suspect]
  3. KLOR-CON [Suspect]

REACTIONS (3)
  - CONSTIPATION [None]
  - SOMNOLENCE [None]
  - VISION BLURRED [None]
